FAERS Safety Report 5505134-6 (Version None)
Quarter: 2007Q4

REPORT INFORMATION
  Report Type: 
  Country: None (occurrence: None)
  Receive Date: 20071102
  Receipt Date: 20071023
  Transmission Date: 20080405
  Serious: Yes (Hospitalization)
  Sender: FDA-Public Use
  Company Number: US-WYE-H00815907

PATIENT
  Age: 76 Year
  Sex: Male

DRUGS (4)
  1. TORISEL [Suspect]
     Indication: CLEAR CELL CARCINOMA OF THE KIDNEY
     Dosage: UNKNOWN
     Route: 042
     Dates: start: 20071008, end: 20071008
  2. PROTONIX [Concomitant]
  3. ACETYLSALICYLIC ACID SRT [Concomitant]
  4. LASIX [Concomitant]

REACTIONS (2)
  - BLOOD CREATININE INCREASED [None]
  - OLIGURIA [None]
